FAERS Safety Report 4867642-0 (Version None)
Quarter: 2005Q4

REPORT INFORMATION
  Report Type: 
  Country: None (occurrence: None)
  Receive Date: 20051222
  Receipt Date: 20051222
  Transmission Date: 20060501
  Serious: No
  Sender: FDA-Public Use
  Company Number: None

PATIENT
  Age: 81 Year
  Sex: Female
  Weight: 45.3597 kg

DRUGS (2)
  1. CYMBALTA [Suspect]
     Indication: DEPRESSION
     Dosage: 30  QAM  PO
     Route: 048
     Dates: start: 20051123, end: 20051221
  2. CYMBALTA [Suspect]
     Indication: DEPRESSION
     Dosage: 60   QPM    PO
     Route: 048
     Dates: start: 20051123, end: 20051221

REACTIONS (1)
  - PRURITUS GENERALISED [None]
